FAERS Safety Report 7383349-2 (Version None)
Quarter: 2011Q1

REPORT INFORMATION
  Report Type: 
  Country: None (occurrence: None)
  Receive Date: 20110330
  Receipt Date: 20110307
  Transmission Date: 20110831
  Serious: No
  Sender: FDA-Public Use
  Company Number: US-B.I. PHARMACEUTICALS,INC./RIDGEFIELD-2011-BP-07254BP

PATIENT
  Sex: Female

DRUGS (9)
  1. SPIRIVA [Suspect]
     Indication: CHRONIC OBSTRUCTIVE PULMONARY DISEASE
     Dosage: 18 MCG
     Route: 055
     Dates: start: 20110124
  2. SPIRIVA [Suspect]
     Indication: EMPHYSEMA
  3. PRAVASTATIN [Concomitant]
     Indication: BLOOD CHOLESTEROL INCREASED
     Dosage: 40 MG
     Route: 048
  4. BISOPR/HCT [Concomitant]
     Indication: HYPERTENSION
     Dosage: 25 MG
     Route: 048
  5. TOPIRAMATE [Concomitant]
     Indication: HEADACHE
     Dosage: 25 MG
     Route: 048
  6. SULINDAC [Concomitant]
     Indication: SKELETAL INJURY
     Dosage: 200 MG
     Route: 048
  7. RELPAX [Concomitant]
     Indication: HEADACHE
     Dosage: 40 MG
     Route: 048
  8. FOSAMAX [Concomitant]
     Indication: OSTEOPOROSIS
     Route: 048
  9. AMOXICILLIN [Concomitant]
     Indication: PROPHYLAXIS
     Dosage: 2000 MG
     Route: 048

REACTIONS (3)
  - WHEEZING [None]
  - GINGIVITIS [None]
  - DRUG INEFFECTIVE [None]
